FAERS Safety Report 5094394-4 (Version None)
Quarter: 2006Q3

REPORT INFORMATION
  Report Type: 
  Country: None (occurrence: None)
  Receive Date: 20060829
  Receipt Date: 20060821
  Transmission Date: 20061208
  Serious: Yes (Hospitalization)
  Sender: FDA-Public Use
  Company Number: 2006061472

PATIENT
  Age: 56 Year
  Sex: Male

DRUGS (4)
  1. SULFASALAZINE [Suspect]
     Indication: ILL-DEFINED DISORDER
     Dosage: 2000 MG (1 IN 1 D), ORAL
     Route: 048
     Dates: start: 20060117, end: 20060215
  2. PANTOPRAZOLE SODIUM [Suspect]
     Indication: ILL-DEFINED DISORDER
     Dosage: 20 MG (20MG,1 IN 1 D), ORAL
     Route: 048
     Dates: start: 20060117, end: 20060215
  3. DICLOFENAC SODIUM [Suspect]
     Indication: ILL-DEFINED DISORDER
     Dosage: 1 IN 1 D, ORAL
     Route: 048
     Dates: start: 20060117, end: 20060215
  4. PREDNISOLONE [Concomitant]

REACTIONS (15)
  - BLOOD ALBUMIN DECREASED [None]
  - DERMATITIS EXFOLIATIVE [None]
  - DRUG RASH WITH EOSINOPHILIA AND SYSTEMIC SYMPTOMS [None]
  - EPSTEIN-BARR VIRUS ANTIBODY POSITIVE [None]
  - FACE OEDEMA [None]
  - HEPATITIS [None]
  - IMMUNOGLOBULINS DECREASED [None]
  - LYMPHADENOPATHY [None]
  - MALAISE [None]
  - MONONUCLEOSIS SYNDROME [None]
  - PROTEIN TOTAL DECREASED [None]
  - PYREXIA [None]
  - SPINAL MYELOGRAM ABNORMAL [None]
  - TOXIC SKIN ERUPTION [None]
  - TOXOPLASMOSIS [None]
